FAERS Safety Report 19176915 (Version 1)
Quarter: 2021Q2

REPORT INFORMATION
  Report Type: Spontaneous
  Country: GB (occurrence: GB)
  Receive Date: 20210424
  Receipt Date: 20210424
  Transmission Date: 20210717
  Serious: Yes (Other)
  Sender: FDA-Public Use
  Company Number: GB-TEVA-2021-GB-1902612

PATIENT
  Age: 49 Year
  Sex: Female
  Weight: 65.77 kg

DRUGS (2)
  1. LANSOPRAZOL [Concomitant]
     Active Substance: LANSOPRAZOLE
  2. LEVOTHYROXINE. [Suspect]
     Active Substance: LEVOTHYROXINE
     Indication: HYPOTHYROIDISM
     Dosage: 12.5MG
     Route: 048
     Dates: start: 20200701, end: 20210201

REACTIONS (1)
  - Arthralgia [Recovered/Resolved]

NARRATIVE: CASE EVENT DATE: 20201001
